FAERS Safety Report 25956635 (Version 1)
Quarter: 2025Q4

REPORT INFORMATION
  Report Type: Spontaneous
  Country: JP (occurrence: JP)
  Receive Date: 20251024
  Receipt Date: 20251024
  Transmission Date: 20260118
  Serious: Yes (Hospitalization)
  Sender: JOHNSON AND JOHNSON
  Company Number: JP-JNJFOC-20250622561

PATIENT
  Age: 6 Decade
  Sex: Female

DRUGS (7)
  1. PALIPERIDONE PALMITATE [Suspect]
     Active Substance: PALIPERIDONE PALMITATE
     Indication: Schizophrenia
     Dosage: DOSE 1, DELTOID MUSCLE
     Route: 030
     Dates: start: 202402, end: 202402
  2. PALIPERIDONE PALMITATE [Suspect]
     Active Substance: PALIPERIDONE PALMITATE
     Dosage: DOSE 2, DELTOID MUSCLE
     Route: 030
     Dates: start: 2024, end: 2024
  3. PALIPERIDONE PALMITATE [Suspect]
     Active Substance: PALIPERIDONE PALMITATE
     Dosage: DOSE 3, GLUTEAL MUSCLE
     Route: 030
     Dates: start: 202403, end: 202403
  4. PALIPERIDONE PALMITATE [Suspect]
     Active Substance: PALIPERIDONE PALMITATE
     Dosage: DOSE 17, GLUTEAL MUSCLE
     Route: 030
     Dates: start: 202505, end: 202505
  5. PALIPERIDONE PALMITATE [Suspect]
     Active Substance: PALIPERIDONE PALMITATE
     Dosage: DOSE 18, GLUTEAL MUSCLE
     Route: 030
     Dates: start: 202506, end: 202506
  6. PALIPERIDONE PALMITATE [Suspect]
     Active Substance: PALIPERIDONE PALMITATE
     Dosage: DOSE 19, GLUTEAL MUSCLE
     Route: 030
     Dates: start: 202507, end: 202507
  7. INVEGA [Suspect]
     Active Substance: PALIPERIDONE
     Indication: Schizophrenia
     Route: 048
     Dates: start: 202402, end: 202507

REACTIONS (2)
  - General physical health deterioration [Unknown]
  - Dyskinesia [Not Recovered/Not Resolved]
